FAERS Safety Report 19730158 (Version 15)
Quarter: 2022Q1

REPORT INFORMATION
  Report Type: Spontaneous
  Country: GB (occurrence: GB)
  Receive Date: 20210821
  Receipt Date: 20220318
  Transmission Date: 20220424
  Serious: Yes (Death, Life-Threatening, Hospitalization, Other)
  Sender: FDA-Public Use
  Company Number: GB-ROCHE-2677215

PATIENT
  Age: 71 Year
  Sex: Female
  Weight: 54 kg

DRUGS (56)
  1. AMLODIPINE [Suspect]
     Active Substance: AMLODIPINE BESYLATE
     Indication: Hypertension
     Dosage: 1 MILLIGRAM, ONCE A DAY
     Route: 065
  2. AMOXICILLIN [Suspect]
     Active Substance: AMOXICILLIN
     Indication: Product used for unknown indication
     Dosage: UNK (START DATE: 10-AUG-2020)
     Route: 065
     Dates: start: 20200810, end: 20200816
  3. CLOPIDOGREL [Suspect]
     Active Substance: CLOPIDOGREL BISULFATE
     Indication: Hypertension
     Dosage: 1 DOSAGE FORM, ONCE A DAY
     Route: 065
  4. CIPROFLOXACIN [Suspect]
     Active Substance: CIPROFLOXACIN
     Indication: Prophylaxis
     Dosage: UNK, TWO TIMES A DAY
     Route: 065
     Dates: start: 20200827
  5. FLUCONAZOLE [Suspect]
     Active Substance: FLUCONAZOLE
     Indication: Candida infection
     Dosage: ONCE A DAY
     Route: 065
  6. LINEZOLID [Suspect]
     Active Substance: LINEZOLID
     Indication: Neutropenic sepsis
     Dosage: UNK, UNK
     Route: 065
     Dates: start: 20200830
  7. VENLAFAXINE [Suspect]
     Active Substance: VENLAFAXINE HYDROCHLORIDE
     Indication: Depression
     Dosage: UNK, ONCE A DAY
     Route: 065
  8. VENLAFAXINE [Suspect]
     Active Substance: VENLAFAXINE HYDROCHLORIDE
     Dosage: UNK, QD
     Route: 065
     Dates: start: 20200820
  9. VORICONAZOLE [Suspect]
     Active Substance: VORICONAZOLE
     Indication: Neutropenic sepsis
     Dosage: UNK, ONCE PER DAY
     Route: 065
     Dates: start: 20200830
  10. ZOPICLONE [Suspect]
     Active Substance: ZOPICLONE
     Indication: Prophylaxis
     Dosage: 1 MILLIGRAM, ONCE A DAY
     Route: 065
     Dates: start: 20200731
  11. ATEZOLIZUMAB [Suspect]
     Active Substance: ATEZOLIZUMAB
     Indication: Non-small cell lung cancer
     Dosage: 1200 MG, Q3W
     Route: 042
     Dates: start: 20200729
  12. ATEZOLIZUMAB [Suspect]
     Active Substance: ATEZOLIZUMAB
     Indication: Small cell lung cancer
     Dosage: 1200 MG,  TIW
     Route: 042
     Dates: start: 20200819
  13. ATEZOLIZUMAB [Suspect]
     Active Substance: ATEZOLIZUMAB
     Indication: Transitional cell carcinoma
  14. ATEZOLIZUMAB [Suspect]
     Active Substance: ATEZOLIZUMAB
     Indication: Small cell lung cancer
     Dosage: 1200 MG, EVERY 3 WEEKS
     Route: 041
     Dates: start: 20200729
  15. ATEZOLIZUMAB [Suspect]
     Active Substance: ATEZOLIZUMAB
     Indication: Transitional cell carcinoma
     Dosage: 1200 MILLIGRAM,EVERY 3 WEEKS
     Route: 041
     Dates: start: 20200819
  16. ATEZOLIZUMAB [Suspect]
     Active Substance: ATEZOLIZUMAB
     Indication: Non-small cell lung cancer
  17. CARBOPLATIN [Suspect]
     Active Substance: CARBOPLATIN
     Indication: Non-small cell lung cancer
     Dosage: 450 MG, ONCE PER DAY
     Route: 065
     Dates: start: 20200729
  18. CARBOPLATIN [Suspect]
     Active Substance: CARBOPLATIN
     Dosage: 450 MILLIGRAM (START DATE: 29-JUL-2020)
     Route: 065
  19. ACETAMINOPHEN\CODEINE PHOSPHATE [Suspect]
     Active Substance: ACETAMINOPHEN\CODEINE PHOSPHATE
     Indication: Pain
     Dosage: 0.5, ONCE A DAY
     Route: 065
  20. CYCLIZINE [Suspect]
     Active Substance: CYCLIZINE
     Indication: Vomiting
     Dosage: FOUR TIMES/DAY (1 IN 0.25 DAY)
     Route: 065
  21. CYCLIZINE [Suspect]
     Active Substance: CYCLIZINE
     Indication: Neutropenic sepsis
     Dosage: UNK, TWO TIMES A DAY
     Route: 065
  22. CYCLIZINE [Suspect]
     Active Substance: CYCLIZINE
     Dosage: 4 MILLIGRAM, ONCE A DAY
     Route: 065
  23. CYCLIZINE [Suspect]
     Active Substance: CYCLIZINE
     Dosage: 1 DOSAGE FORM, ONCE A DAY
     Route: 065
  24. DEXAMETHASONE [Suspect]
     Active Substance: DEXAMETHASONE
     Indication: Dysphagia
     Dosage: UNK,  ONCE PER DAY
     Route: 065
     Dates: start: 20200826
  25. BENZYDAMINE [Suspect]
     Active Substance: BENZYDAMINE
     Indication: Prophylaxis
     Dosage: UNK, UNK
     Route: 065
     Dates: start: 20200819
  26. ETOPOSIDE [Suspect]
     Active Substance: ETOPOSIDE
     Indication: Non-small cell lung cancer
     Dosage: 148 MG,  ONCE PER DAY
     Route: 065
     Dates: start: 20200729
  27. ETOPOSIDE [Suspect]
     Active Substance: ETOPOSIDE
     Dosage: 600 MILLIGRAM, ONCE A DAY
     Route: 065
     Dates: start: 20200730
  28. FORMOTEROL [Suspect]
     Active Substance: FORMOTEROL
     Indication: Hypertension
     Dosage: 1 DOSAGE FORM, TWO TIMES A DAY
     Route: 065
  29. FORMOTEROL [Suspect]
     Active Substance: FORMOTEROL
     Dosage: 1 MILLIGRAM, ONCE A DAY
     Route: 065
  30. FORMOTEROL [Suspect]
     Active Substance: FORMOTEROL
     Dosage: 1 MILLIGRAM, TWO TIMES A DAY
     Route: 065
     Dates: start: 20200301
  31. LACTULOSE [Suspect]
     Active Substance: LACTULOSE
     Indication: Prophylaxis
     Dosage: UNK, TWO TIMES A DAY
     Route: 065
  32. LACTULOSE [Suspect]
     Active Substance: LACTULOSE
     Dosage: 1 DOSAGE FORM, ONCE A DAY
     Route: 065
  33. LANSOPRAZOLE [Suspect]
     Active Substance: LANSOPRAZOLE
     Indication: Prophylaxis
     Dosage: 1 MILLIGRAM, ONCE A DAY
     Route: 065
     Dates: start: 20170101
  34. MORPHINE SULFATE [Suspect]
     Active Substance: MORPHINE SULFATE
     Indication: Prophylaxis
     Dosage: UNK , ONCE A DAY
     Route: 065
     Dates: start: 20200727
  35. MORPHINE SULFATE [Suspect]
     Active Substance: MORPHINE SULFATE
     Indication: Pain
     Dosage: UNK, TWO TIMES A DAY
     Route: 065
     Dates: start: 20200731
  36. MORPHINE SULFATE [Suspect]
     Active Substance: MORPHINE SULFATE
     Dosage: 1 DOSAGE FORM, ONCE A DAY
     Route: 065
     Dates: start: 20200731
  37. MORPHINE SULFATE [Suspect]
     Active Substance: MORPHINE SULFATE
     Indication: Pain
     Dosage: UNK,  ONCE PER DAY
     Route: 065
     Dates: start: 20200727
  38. MORPHINE SULFATE [Suspect]
     Active Substance: MORPHINE SULFATE
     Indication: Prophylaxis
     Dosage: UNK,
     Route: 065
     Dates: start: 20200825
  39. MORPHINE SULFATE [Suspect]
     Active Substance: MORPHINE SULFATE
     Dosage: 1 DOSAGE FORM, ONCE A DAY
     Route: 065
     Dates: start: 20200731
  40. ALBUTEROL [Suspect]
     Active Substance: ALBUTEROL
     Indication: Prophylaxis
     Dosage: UNK
     Route: 065
  41. SPIRIVA [Suspect]
     Active Substance: TIOTROPIUM BROMIDE MONOHYDRATE
     Indication: Chronic obstructive pulmonary disease
     Dosage: 1 DOSAGE FORM, ONCE A DAY
     Route: 065
  42. ZOLMITRIPTAN [Suspect]
     Active Substance: ZOLMITRIPTAN
     Indication: Headache
     Dosage: TWO TIMES A DAY
     Route: 065
  43. ZOLMITRIPTAN [Suspect]
     Active Substance: ZOLMITRIPTAN
     Indication: Pain
     Dosage: UNK, ONCE A DAY
     Route: 065
  44. ZOLMITRIPTAN [Suspect]
     Active Substance: ZOLMITRIPTAN
     Dosage: 0.5 MILLIGRAM, ONCE A DAY
     Route: 065
  45. TIOTROPIUM [Suspect]
     Active Substance: TIOTROPIUM
     Indication: Chronic obstructive pulmonary disease
     Dosage: UNK, ONCE A DAY
     Route: 065
  46. ZOLMITRIPTAN [Suspect]
     Active Substance: ZOLMITRIPTAN
     Indication: Pain
     Dosage: UNK, ONCE A DAY
     Route: 065
  47. CEFTAZIDIME [Concomitant]
     Active Substance: CEFTAZIDIME
     Indication: Neutropenic sepsis
     Dosage: UNK
     Route: 065
  48. MAGNESIUM [Concomitant]
     Active Substance: MAGNESIUM
     Indication: Product used for unknown indication
     Dosage: UNK,  UNK
     Route: 065
     Dates: start: 20200819, end: 20200819
  49. METOCLOPRAMIDE [Concomitant]
     Active Substance: METOCLOPRAMIDE
     Indication: Vomiting
     Dosage: 1 DOSAGE FORM, FOUR TIMES/DAY
     Route: 065
     Dates: start: 20200819, end: 20200819
  50. METOCLOPRAMIDE [Concomitant]
     Active Substance: METOCLOPRAMIDE
     Indication: Hypomagnesaemia
  51. UNSPECIFIED INGREDIENT [Concomitant]
     Active Substance: UNSPECIFIED INGREDIENT
     Indication: Product used for unknown indication
     Dosage: 1 DOSAGE FORM
     Route: 065
     Dates: start: 20200825
  52. PHOSPHORIC ACID [Concomitant]
     Active Substance: PHOSPHORIC ACID
     Indication: Product used for unknown indication
     Dosage: UNK,  ONCE PER DAY
     Route: 065
     Dates: start: 20200825, end: 20200825
  53. POTASSIUM CHLORIDE [Concomitant]
     Active Substance: POTASSIUM CHLORIDE
     Indication: Prophylaxis
     Dosage: TWO TIMES A DAY
     Route: 065
     Dates: start: 20200819
  54. POTASSIUM CHLORIDE [Concomitant]
     Active Substance: POTASSIUM CHLORIDE
     Dosage: UNK
     Route: 065
     Dates: start: 20200828
  55. POTASSIUM BICARBONATE\POTASSIUM CHLORIDE [Concomitant]
     Active Substance: POTASSIUM BICARBONATE\POTASSIUM CHLORIDE
     Indication: Prophylaxis
     Dosage: TWO TIMES A DAY
     Route: 065
     Dates: start: 20200819
  56. POTASSIUM BICARBONATE\POTASSIUM CHLORIDE [Concomitant]
     Active Substance: POTASSIUM BICARBONATE\POTASSIUM CHLORIDE
     Dosage: UNK (5QD)
     Route: 065
     Dates: start: 20200828, end: 20200901

REACTIONS (26)
  - Neutropenic sepsis [Fatal]
  - Anaemia [Fatal]
  - Asthenia [Fatal]
  - Balance disorder [Fatal]
  - Constipation [Fatal]
  - Decreased appetite [Fatal]
  - Dehydration [Fatal]
  - Depression [Fatal]
  - Diarrhoea [Fatal]
  - Dyspnoea [Fatal]
  - Dysphagia [Fatal]
  - Gait disturbance [Fatal]
  - Headache [Fatal]
  - Hypokalaemia [Fatal]
  - Hypomagnesaemia [Fatal]
  - Mouth ulceration [Fatal]
  - Mucosal inflammation [Fatal]
  - Nausea [Fatal]
  - Neutrophil count decreased [Fatal]
  - Nervous system disorder [Fatal]
  - Productive cough [Fatal]
  - Product use in unapproved indication [Fatal]
  - Skin candida [Fatal]
  - Vomiting [Fatal]
  - Candida infection [Not Recovered/Not Resolved]
  - Death [Fatal]

NARRATIVE: CASE EVENT DATE: 20200730
